FAERS Safety Report 10447314 (Version 1)
Quarter: 2014Q3

REPORT INFORMATION
  Report Type: Spontaneous
  Country: US (occurrence: None)
  Receive Date: 20140910
  Receipt Date: 20140910
  Transmission Date: 20150326
  Serious: No
  Sender: FDA-Public Use
  Company Number: None

PATIENT

DRUGS (2)
  1. AFRIN [Suspect]
     Active Substance: OXYMETAZOLINE
  2. EPINEPHRINE\LIDOCAINE [Suspect]
     Active Substance: EPINEPHRINE\LIDOCAINE

REACTIONS (4)
  - Incorrect dose administered [None]
  - Cardiac arrest [None]
  - Incorrect route of drug administration [None]
  - Bradycardia [None]
